FAERS Safety Report 9667879 (Version 1)
Quarter: 2013Q4

REPORT INFORMATION
  Report Type: Spontaneous
  Country: US (occurrence: US)
  Receive Date: 20131104
  Receipt Date: 20131104
  Transmission Date: 20140711
  Serious: Yes (Other)
  Sender: FDA-Public Use
  Company Number: US-PFIZER INC-2013313195

PATIENT
  Age: 59 Year
  Sex: Female
  Weight: 122 kg

DRUGS (13)
  1. LYRICA [Suspect]
     Indication: PAIN
     Dosage: 150 MG, 2X/DAY
     Route: 048
  2. WARFARIN [Concomitant]
     Dosage: 10 MG, UNK
  3. METOPROLOL [Concomitant]
     Dosage: 50 MG, 2X/DAY
  4. NEURONTIN [Concomitant]
     Dosage: 300 MG, 3X/DAY
  5. LEVOTHYROXINE [Concomitant]
     Dosage: 75 UG, 1X/DAY
  6. FUROSEMIDE [Concomitant]
     Dosage: 20 MG, 1X/DAY
  7. HYDROCHLOROTHIAZIDE/TRIAMTERENE [Concomitant]
     Dosage: UNK, 1X/DAY
  8. SAVELLA [Concomitant]
     Dosage: 25 MG, UNK
  9. FENOFIBRATE [Concomitant]
     Dosage: UNK, 1X/DAY
  10. OMEPRAZOLE [Concomitant]
     Dosage: 20 MG, 1X/DAY
  11. VITAMIN D [Concomitant]
     Dosage: 1.25 MG, WEEKLY
  12. PERCOCET [Concomitant]
     Dosage: 5/325 MG, EVERY 4 TO 6 HOURS
  13. REQUIP [Concomitant]
     Dosage: 1 MG, 2X/DAY

REACTIONS (2)
  - Off label use [Unknown]
  - Arthropathy [Unknown]
